FAERS Safety Report 19210665 (Version 1)
Quarter: 2021Q2

REPORT INFORMATION
  Report Type: Spontaneous
  Country: GB (occurrence: GB)
  Receive Date: 20210504
  Receipt Date: 20210504
  Transmission Date: 20210717
  Serious: Yes (Other)
  Sender: FDA-Public Use
  Company Number: GB-STRIDES ARCOLAB LIMITED-2021SP005039

PATIENT
  Age: 72 Year
  Sex: Female

DRUGS (6)
  1. DEFLAZACORT [Suspect]
     Active Substance: DEFLAZACORT
     Dosage: UNK,GRADUALLY UPTITRATED
     Route: 065
  2. TOCILIZUMAB. [Suspect]
     Active Substance: TOCILIZUMAB
     Indication: GIANT CELL ARTERITIS
     Dosage: 8 MILLIGRAM/KILOGRAM (OVER THE FIRST FOUR INFUSIONS)
     Route: 042
  3. TOCILIZUMAB. [Suspect]
     Active Substance: TOCILIZUMAB
     Dosage: 4 MILLIGRAM/KILOGRAM
     Route: 042
  4. DEXAMETHASONE. [Suspect]
     Active Substance: DEXAMETHASONE
     Indication: GIANT CELL ARTERITIS
     Dosage: UNK
     Route: 065
  5. DEFLAZACORT [Suspect]
     Active Substance: DEFLAZACORT
     Indication: GIANT CELL ARTERITIS
     Dosage: UNK
     Route: 065
  6. PREDNISOLONE. [Suspect]
     Active Substance: PREDNISOLONE
     Indication: GIANT CELL ARTERITIS
     Dosage: 60 MILLIGRAM PER DAY
     Route: 065

REACTIONS (1)
  - Type IV hypersensitivity reaction [Recovered/Resolved]
